FAERS Safety Report 5466662-5 (Version None)
Quarter: 2007Q3

REPORT INFORMATION
  Report Type: 
  Country: None (occurrence: None)
  Receive Date: 20070921
  Receipt Date: 20070921
  Transmission Date: 20080115
  Serious: No
  Sender: FDA-Public Use
  Company Number: None

PATIENT
  Age: 36 Year
  Sex: Female
  Weight: 73.5734 kg

DRUGS (2)
  1. ESTRADIOL [Suspect]
     Indication: HYSTERECTOMY
     Dosage: 0.075MG
     Dates: start: 20070727
  2. ESTRADIOL [Suspect]
     Indication: HYSTERECTOMY
     Dosage: 0.075MG
     Dates: start: 20070814

REACTIONS (2)
  - BLISTER [None]
  - PHARMACEUTICAL PRODUCT COMPLAINT [None]
